FAERS Safety Report 6286457-2 (Version None)
Quarter: 2009Q3

REPORT INFORMATION
  Report Type: 
  Country: None (occurrence: None)
  Receive Date: 20090728
  Receipt Date: 20090717
  Transmission Date: 20100115
  Serious: Yes (Other)
  Sender: FDA-Public Use
  Company Number: B0559439A

PATIENT
  Sex: Female

DRUGS (5)
  1. RELENZA [Suspect]
     Indication: INFLUENZA
     Dosage: 10MG PER DAY
     Route: 055
     Dates: start: 20090208, end: 20090208
  2. ANTOBRON [Concomitant]
     Indication: PRODUCTIVE COUGH
     Dosage: 45MG PER DAY
     Route: 048
  3. CHLOPHEDRIN S [Concomitant]
     Indication: COUGH
     Route: 048
  4. CLARITHROMYCIN [Concomitant]
     Indication: INFECTION
     Dosage: 400MG PER DAY
     Route: 048
  5. ANYRUME [Concomitant]
     Indication: ANALGESIA
     Route: 048

REACTIONS (3)
  - ARTHRALGIA [None]
  - PALLOR [None]
  - PRESYNCOPE [None]
